FAERS Safety Report 9296684 (Version 6)
Quarter: 2013Q4

REPORT INFORMATION
  Report Type: Report from Study
  Country: NL (occurrence: NL)
  Receive Date: 20130517
  Receipt Date: 20131205
  Transmission Date: 20140711
  Serious: Yes (Hospitalization)
  Sender: FDA-Public Use
  Company Number: PHHO2012NL014366

PATIENT
  Sex: 0

DRUGS (15)
  1. CERTICAN [Suspect]
     Indication: RENAL TRANSPLANT
     Dosage: 4.5 MG, UNK
     Route: 048
     Dates: start: 20120318, end: 20121016
  2. CERTICAN [Suspect]
     Dosage: 3 MG, UNK
     Route: 048
     Dates: start: 20121017
  3. PROGRAF [Suspect]
     Indication: RENAL TRANSPLANT
     Dosage: 4 MG, BID
     Dates: start: 20120711
  4. MYFORTIC [Suspect]
     Indication: RENAL TRANSPLANT
     Dosage: 720 MG, BID
     Dates: start: 20120718
  5. MYFORTIC [Suspect]
     Dosage: 540 MG, BID
     Dates: start: 20121017
  6. PREDNISOLON [Suspect]
     Indication: RENAL TRANSPLANT
     Dosage: 7.5 MG, UNK
     Dates: start: 20120715, end: 20130906
  7. PREDNISOLON [Suspect]
     Dosage: 20 MG, UNK
     Dates: start: 20130906, end: 20130909
  8. COTRIMOXAZOL [Concomitant]
     Indication: RENAL TRANSPLANT
     Dosage: 480 MG, QD
     Dates: start: 20120718
  9. MEROPENEM [Concomitant]
     Indication: ANTIBIOTIC THERAPY
     Dosage: 1000 MG, UNK
     Route: 042
     Dates: start: 20130113
  10. MEROPENEM [Concomitant]
     Dosage: 1000 MG, 2X DD
     Route: 042
     Dates: start: 20130506
  11. COTRIM [Concomitant]
     Indication: PROPHYLAXIS
     Dosage: UNK
     Dates: start: 20120711
  12. NEXIUM [Concomitant]
     Indication: PROPHYLAXIS
     Dosage: 20 MG, QD
     Dates: start: 20120711
  13. MICROGYNON [Concomitant]
     Indication: PROPHYLAXIS
     Dosage: 1 DF, QD
     Dates: start: 20120710
  14. SELOKEEN ZOC [Concomitant]
     Indication: HYPERTENSION
     Dosage: 50 MG, QD
     Dates: start: 20120914
  15. HYDROCORTISONE [Concomitant]
     Dosage: 50 MG, ONCE/SINGLE
     Dates: start: 20130113

REACTIONS (9)
  - Pyelonephritis [Recovering/Resolving]
  - Hypotension [Recovering/Resolving]
  - Herpes simplex [Recovering/Resolving]
  - Hypocalcaemia [Recovering/Resolving]
  - Hypophosphataemia [Recovering/Resolving]
  - Pyrexia [Recovering/Resolving]
  - Cytomegalovirus infection [Not Recovered/Not Resolved]
  - Malaise [Recovering/Resolving]
  - Urosepsis [Recovered/Resolved]
